FAERS Safety Report 15248644 (Version 3)
Quarter: 2018Q4

REPORT INFORMATION
  Report Type: Report from Study
  Country: FR (occurrence: FR)
  Receive Date: 20180807
  Receipt Date: 20181023
  Transmission Date: 20190204
  Serious: Yes (Hospitalization)
  Sender: FDA-Public Use
  Company Number: FR-ROCHE-2164858

PATIENT
  Age: 64 Year
  Sex: Female
  Weight: 62 kg

DRUGS (9)
  1. DIFFU-K [Concomitant]
     Active Substance: POTASSIUM CHLORIDE
     Indication: RENAL FAILURE
     Dosage: 1
     Route: 048
     Dates: start: 20180627, end: 20180707
  2. COBIMETINIB. [Suspect]
     Active Substance: COBIMETINIB
     Indication: MALIGNANT MELANOMA
     Dosage: DATE OF MOST RECENT DOSE OF COBIMETINIB PRIOR TO SAE ONSET: 25/JUN/2018 (60 MG)
     Route: 048
     Dates: start: 20180612
  3. CEFTRIAXONE SODIUM. [Concomitant]
     Active Substance: CEFTRIAXONE SODIUM
     Indication: INTERSTITIAL LUNG DISEASE
     Route: 048
     Dates: start: 20180628, end: 20180704
  4. NORMACOL [Concomitant]
     Active Substance: HERBALS\KARAYA GUM
     Indication: CONSTIPATION
     Route: 048
     Dates: start: 20180708, end: 20180708
  5. MORPHINE [Concomitant]
     Active Substance: MORPHINE
     Route: 042
     Dates: start: 20180627, end: 20180628
  6. DOLIPRANE [Concomitant]
     Active Substance: ACETAMINOPHEN
     Indication: PYREXIA
     Route: 048
     Dates: start: 20180622
  7. SPIRAMYCIN [Concomitant]
     Active Substance: SPIRAMYCIN
     Indication: INTERSTITIAL LUNG DISEASE
     Dosage: 3 OTHER
     Route: 048
     Dates: start: 20180628, end: 20180711
  8. ATEZOLIZUMAB. [Suspect]
     Active Substance: ATEZOLIZUMAB
     Indication: MALIGNANT MELANOMA
     Dosage: DATE OF MOST RECENT DOSE OF ATEZOLIZUMAB (840 MG) PRIOR TO URTICARIA ONSET: 11/JUL/2018 ?DATE OF MOS
     Route: 042
     Dates: start: 20180612
  9. MORPHINE [Concomitant]
     Active Substance: MORPHINE
     Indication: MYALGIA
     Route: 042
     Dates: start: 20180627, end: 20180627

REACTIONS (2)
  - Urticaria [Recovered/Resolved]
  - Dermatitis allergic [Recovered/Resolved]

NARRATIVE: CASE EVENT DATE: 20180711
